FAERS Safety Report 16390080 (Version 2)
Quarter: 2019Q3

REPORT INFORMATION
  Report Type: Report from Study
  Country: MX (occurrence: MX)
  Receive Date: 20190604
  Receipt Date: 20190709
  Transmission Date: 20191004
  Serious: Yes (Life-Threatening, Hospitalization)
  Sender: FDA-Public Use
  Company Number: PHHY2019MX128624

PATIENT
  Age: 68 Year
  Sex: Female
  Weight: 86 kg

DRUGS (5)
  1. CLONAZEPAM. [Concomitant]
     Active Substance: CLONAZEPAM
     Indication: INSOMNIA
     Dosage: 1 DF, QD (10 YEARS AGO)
     Route: 048
  2. EXFORGE [Suspect]
     Active Substance: AMLODIPINE BESYLATE\VALSARTAN
     Dosage: 2 DF (AMLODIPINE 5 MG, VALSARTAN 160 MG)
     Route: 048
  3. FUROSEMIDE. [Concomitant]
     Active Substance: FUROSEMIDE
     Indication: DYSURIA
     Dosage: 0.5 DF, QD (4 YEARS AGO)
     Route: 048
  4. INSULIN [Concomitant]
     Active Substance: INSULIN NOS
     Indication: DIABETES MELLITUS
     Dosage: 12 U, QD (4 MONTHS AGO)
     Route: 059
  5. EXFORGE [Suspect]
     Active Substance: AMLODIPINE BESYLATE\VALSARTAN
     Indication: HYPERTENSION
     Dosage: 1 DF (AMLODIPINE 5 MG, VALSARTAN 160 MG), QD
     Route: 048
     Dates: start: 201702

REACTIONS (7)
  - Renal disorder [Recovered/Resolved]
  - Haemoglobin decreased [Unknown]
  - Hypertension [Recovering/Resolving]
  - Blood glucose increased [Recovering/Resolving]
  - Depression [Not Recovered/Not Resolved]
  - Incorrect dose administered [Unknown]
  - Renal failure [Not Recovered/Not Resolved]

NARRATIVE: CASE EVENT DATE: 201905
